FAERS Safety Report 9328186 (Version 2)
Quarter: 2013Q3

REPORT INFORMATION
  Report Type: Report from Study
  Country: CZ (occurrence: CZ)
  Receive Date: 20130604
  Receipt Date: 20130726
  Transmission Date: 20140515
  Serious: Yes (Hospitalization)
  Sender: FDA-Public Use
  Company Number: CZ-ABBOTT-13P-217-1097386-00

PATIENT
  Age: 74 Year
  Sex: Female
  Weight: 60 kg

DRUGS (12)
  1. HUMIRA [Suspect]
     Indication: RHEUMATOID ARTHRITIS
     Route: 058
     Dates: start: 201001, end: 20120917
  2. METYPRED [Concomitant]
     Indication: RHEUMATOID ARTHRITIS
     Dosage: EVERY DAY
     Dates: start: 2012
  3. PLAQUENIL (HYDROCHLOROCHIN) [Concomitant]
     Indication: RHEUMATOID ARTHRITIS
     Dates: start: 2004
  4. OMEPRAZOLUM [Concomitant]
     Indication: PROPHYLAXIS
     Dosage: EVERY DAY
     Dates: start: 2005
  5. OMEPRAZOLUM [Concomitant]
     Indication: GASTRODUODENAL ULCER
  6. AULIN [Concomitant]
     Indication: RHEUMATOID ARTHRITIS
     Dosage: AS NEEDED
  7. BONVIVA (KYSELINA IBANDRONOV?) [Concomitant]
     Indication: OSTEOPOROSIS
  8. CALCIUM CARBONATE [Concomitant]
     Indication: OSTEOPOROSIS
     Dates: start: 2004
  9. VIGANTOL [Concomitant]
     Indication: OSTEOPOROSIS
     Dates: start: 2007
  10. SORTIS (ATORVASTAT?N) [Concomitant]
     Indication: HYPERLIPIDAEMIA
     Dosage: EVERY DAY
     Dates: start: 2012
  11. ANOPYRIN (KYSELINA ACETYLSALICYLOV?) [Concomitant]
     Indication: PULMONARY EMBOLISM
     Dates: start: 2003
  12. ZOREM [Concomitant]
     Indication: HYPERTENSION
     Dates: start: 2012

REACTIONS (1)
  - Neoplasm malignant [Recovered/Resolved with Sequelae]
